FAERS Safety Report 10470865 (Version 1)
Quarter: 2014Q3

REPORT INFORMATION
  Report Type: Spontaneous
  Country: US (occurrence: None)
  Receive Date: 20140917
  Receipt Date: 20140917
  Transmission Date: 20150326
  Serious: No
  Sender: FDA-Public Use
  Company Number: 2014CT000090

PATIENT
  Sex: Female

DRUGS (1)
  1. KORLYM [Suspect]
     Active Substance: MIFEPRISTONE
     Indication: CUSHING^S SYNDROME
     Dates: start: 20140610, end: 20140626

REACTIONS (2)
  - Urticaria [None]
  - Rash [None]

NARRATIVE: CASE EVENT DATE: 201406
